FAERS Safety Report 13597181 (Version 1)
Quarter: 2017Q2

REPORT INFORMATION
  Report Type: Not Available
  Country: GB (occurrence: GB)
  Receive Date: 20170531
  Receipt Date: 20170531
  Transmission Date: 20170830
  Serious: Yes (Other)
  Sender: FDA-Public Use
  Company Number: GB-SYNTHON BV-NL01PV17_43813

PATIENT
  Age: 61 Year
  Sex: Male
  Weight: 88 kg

DRUGS (16)
  1. TAMSULOSIN [Suspect]
     Active Substance: TAMSULOSIN
     Dosage: UNK
     Dates: start: 20170512
  2. CODEINE PHOSPHATE [Concomitant]
     Active Substance: CODEINE PHOSPHATE
     Dosage: 2 DF, QD
     Dates: start: 20161011
  3. LATANOPROST. [Concomitant]
     Active Substance: LATANOPROST
     Dosage: UNK
     Dates: start: 20161011
  4. LYRICA [Concomitant]
     Active Substance: PREGABALIN
     Dosage: 1 DF, BID
     Dates: start: 20161011
  5. OMACOR [Concomitant]
     Active Substance: OMEGA-3-ACID ETHYL ESTERS
     Dosage: 2 DF, QD
     Dates: start: 20170207
  6. SUNVIT                             /02146701/ [Concomitant]
     Dosage: 1 DF, WKLY, FOR NEXT 12 WEEKS.
     Dates: start: 20170216, end: 20170316
  7. EZETIMIBE. [Concomitant]
     Active Substance: EZETIMIBE
     Dosage: 1 DF, QD
     Dates: start: 20161011
  8. GLYCERYL TRINITRATE [Concomitant]
     Active Substance: NITROGLYCERIN
     Dosage: UNK
     Dates: start: 20170217, end: 20170218
  9. ASPIRIN                            /00002701/ [Concomitant]
     Active Substance: ASPIRIN
     Dosage: 1 DF, QD
     Dates: start: 20161011
  10. DERMOL                             /01330701/ [Concomitant]
     Dosage: USE AS DIRECTED.
     Dates: start: 20161011
  11. ATENOLOL. [Concomitant]
     Active Substance: ATENOLOL
     Dosage: 1 DF, QD, MORNING.
     Dates: start: 20161011
  12. FLUOXETINE [Concomitant]
     Active Substance: FLUOXETINE HYDROCHLORIDE
     Dosage: 2 DF, QD
     Dates: start: 20161011
  13. PARACETAMOL [Concomitant]
     Active Substance: ACETAMINOPHEN
     Dosage: 2 DF, QID
     Dates: start: 20161011
  14. ZOTON [Concomitant]
     Active Substance: LANSOPRAZOLE
     Dosage: 1 DF, QD
     Dates: start: 20161011
  15. HYOSCINE BUTYLBROMIDE [Concomitant]
     Active Substance: BUTYLSCOPOLAMINE
     Dosage: 1 DF, TID
     Dates: start: 20161011
  16. PIZOTIFEN [Concomitant]
     Active Substance: PIZOTYLINE
     Dosage: 1 DF, QD, NIGHT.
     Dates: start: 20161011

REACTIONS (1)
  - Oral mucosal blistering [Recovered/Resolved]

NARRATIVE: CASE EVENT DATE: 20170512
